FAERS Safety Report 4415687-7 (Version None)
Quarter: 2004Q2

REPORT INFORMATION
  Report Type: 
  Country: None (occurrence: None)
  Receive Date: 20040628
  Receipt Date: 20040210
  Transmission Date: 20050107
  Serious: Yes (Death, Hospitalization, Disabling)
  Sender: FDA-Public Use
  Company Number: 358733

PATIENT
  Age: 63 Year
  Sex: Male
  Weight: 56 kg

DRUGS (4)
  1. CELLCEPT [Suspect]
     Indication: IMMUNOSUPPRESSION
     Dosage: 250 MG 2 PER DAY ORAL
     Route: 048
     Dates: start: 20030516, end: 20030618
  2. CELLCEPT [Suspect]
     Indication: PROPHYLAXIS AGAINST TRANSPLANT REJECTION
     Dosage: 250 MG 2 PER DAY ORAL
     Route: 048
     Dates: start: 20030516, end: 20030618
  3. PROGRAF [Concomitant]
  4. PREDNISONE [Concomitant]

REACTIONS (1)
  - LUNG SQUAMOUS CELL CARCINOMA STAGE UNSPECIFIED [None]
